FAERS Safety Report 7274459-9 (Version None)
Quarter: 2011Q1

REPORT INFORMATION
  Report Type: 
  Country: None (occurrence: None)
  Receive Date: 20110204
  Receipt Date: 20110201
  Transmission Date: 20110831
  Serious: No
  Sender: FDA-Public Use
  Company Number: US-PFIZER INC-2011023984

PATIENT
  Sex: Female
  Weight: 56.689 kg

DRUGS (4)
  1. ALPRAZOLAM [Suspect]
     Indication: ANXIETY
     Dosage: THREE TIMES A DAY
     Route: 048
  2. ZOLOFT [Concomitant]
     Indication: ANXIETY
     Dosage: 100 MG, 1X/DAY
     Route: 048
  3. ZOLOFT [Concomitant]
     Indication: PANIC DISORDER
  4. ALPRAZOLAM [Suspect]
     Indication: PANIC DISORDER

REACTIONS (1)
  - DRUG INEFFECTIVE [None]
